FAERS Safety Report 6158526-9 (Version None)
Quarter: 2009Q2

REPORT INFORMATION
  Report Type: 
  Country: None (occurrence: None)
  Receive Date: 20090408
  Receipt Date: 20090116
  Transmission Date: 20091009
  Serious: Yes (Death)
  Sender: FDA-Public Use
  Company Number: BMS-LI-2009-0022-V001

PATIENT
  Age: 46 Year
  Sex: Male

DRUGS (4)
  1. TRAZODONE HYDROCHLORIDE [Suspect]
  2. HYDROCODONE BITARTRATE [Suspect]
  3. OXYCODONE HCL [Suspect]
  4. DIAZEPAM [Suspect]

REACTIONS (3)
  - CARDIAC ARREST [None]
  - DRUG TOXICITY [None]
  - RESPIRATORY ARREST [None]
